FAERS Safety Report 6239688-1 (Version None)
Quarter: 2009Q2

REPORT INFORMATION
  Report Type: 
  Country: None (occurrence: None)
  Receive Date: 20090619
  Receipt Date: 20090610
  Transmission Date: 20091009
  Serious: Yes (Hospitalization)
  Sender: FDA-Public Use
  Company Number: GXKR2009AU06755

PATIENT
  Age: 31 Year
  Sex: Male

DRUGS (1)
  1. FLUPHENAZINE [Suspect]
     Dosage: 50 MG (2 DEPOTS, INTRAMUSCULAR
     Route: 030

REACTIONS (6)
  - AKATHISIA [None]
  - BLOOD CREATINE PHOSPHOKINASE INCREASED [None]
  - DYSTONIA [None]
  - EXTRAPYRAMIDAL DISORDER [None]
  - MEDICATION ERROR [None]
  - WRONG DRUG ADMINISTERED [None]
